FAERS Safety Report 6126176-6 (Version None)
Quarter: 2009Q1

REPORT INFORMATION
  Report Type: 
  Country: None (occurrence: None)
  Receive Date: 20090320
  Receipt Date: 20090317
  Transmission Date: 20090719
  Serious: Yes (Other)
  Sender: FDA-Public Use
  Company Number: B0559226A

PATIENT
  Age: 13 Year
  Sex: Female

DRUGS (2)
  1. RELENZA [Suspect]
     Indication: INFLUENZA
     Dosage: 10MG TWICE PER DAY
     Route: 055
     Dates: start: 20090209, end: 20090209
  2. RELENZA [Suspect]
     Dosage: 5MG TWICE PER DAY
     Route: 055
     Dates: start: 20090210, end: 20090215

REACTIONS (5)
  - ALTERED STATE OF CONSCIOUSNESS [None]
  - ASTHENIA [None]
  - CARDIOVASCULAR DISORDER [None]
  - MALAISE [None]
  - PALLOR [None]
